FAERS Safety Report 6152622-8 (Version None)
Quarter: 2009Q2

REPORT INFORMATION
  Report Type: 
  Country: None (occurrence: None)
  Receive Date: 20090413
  Receipt Date: 20090409
  Transmission Date: 20091009
  Serious: No
  Sender: FDA-Public Use
  Company Number: US-B.I. PHARMACEUTICALS,INC./RIDGEFIELD-2009-BP-03328BP

PATIENT
  Sex: Female

DRUGS (3)
  1. MIRAPEX [Suspect]
     Indication: RESTLESS LEGS SYNDROME
     Dosage: .5MG
     Route: 048
     Dates: start: 20080801, end: 20090101
  2. MIRAPEX [Suspect]
     Dosage: .25MG
     Route: 048
     Dates: start: 20090101, end: 20090201
  3. MIRAPEX [Suspect]
     Dosage: .125MG
     Route: 048
     Dates: start: 20090201

REACTIONS (2)
  - MUSCULOSKELETAL STIFFNESS [None]
  - MYALGIA [None]
